FAERS Safety Report 20643534 (Version 1)
Quarter: 2022Q1

REPORT INFORMATION
  Report Type: Spontaneous
  Country: DE (occurrence: DE)
  Receive Date: 20220328
  Receipt Date: 20220328
  Transmission Date: 20220423
  Serious: Yes (Other)
  Sender: FDA-Public Use
  Company Number: None

PATIENT
  Sex: Female

DRUGS (1)
  1. CYTOTEC [Suspect]
     Active Substance: MISOPROSTOL
     Indication: Labour induction
     Dosage: FREQ:{TOTAL};4X100 MCG
     Dates: start: 20100113, end: 20100113

REACTIONS (3)
  - Coma [Unknown]
  - Uterine tachysystole [Unknown]
  - Off label use [Unknown]

NARRATIVE: CASE EVENT DATE: 20100101
